FAERS Safety Report 8600773-8 (Version None)
Quarter: 2012Q3

REPORT INFORMATION
  Report Type: 
  Country: None (occurrence: None)
  Receive Date: 20120817
  Receipt Date: 20120807
  Transmission Date: 20120928
  Serious: Yes (Hospitalization)
  Sender: FDA-Public Use
  Company Number: US-BAYER-2012-043494

PATIENT
  Age: 46 Year
  Sex: Female
  Weight: 111 kg

DRUGS (9)
  1. POTASSIUM [Concomitant]
     Dosage: UNK
     Dates: start: 20040101, end: 20051101
  2. EXCEDRIN (MIGRAINE) [Concomitant]
     Dosage: UNK UNK, PRN
  3. MULTI-VITAMINS [Concomitant]
     Dosage: UNK, DAILY
  4. PROTONIX [Concomitant]
     Indication: GASTROOESOPHAGEAL REFLUX DISEASE
     Dosage: UNK
     Dates: start: 20040101, end: 20051101
  5. ZOLOFT [Concomitant]
     Indication: DEPRESSION
     Dosage: UNK
     Dates: start: 20050801, end: 20051101
  6. YASMIN [Suspect]
     Indication: DYSFUNCTIONAL UTERINE BLEEDING
  7. AMBIEN [Concomitant]
     Indication: SLEEP DISORDER THERAPY
     Dosage: UNK
     Dates: start: 20051001
  8. YASMIN [Suspect]
     Indication: MENSTRUAL CYCLE MANAGEMENT
     Dosage: UNK
     Dates: start: 20040501, end: 20051001
  9. BENICAR [Concomitant]
     Indication: HYPERTENSION
     Dosage: UNK
     Dates: start: 20040101, end: 20051101

REACTIONS (10)
  - DYSPNOEA [None]
  - PULMONARY EMBOLISM [None]
  - INJURY [None]
  - EMOTIONAL DISTRESS [None]
  - LUNG INFILTRATION [None]
  - DEEP VEIN THROMBOSIS [None]
  - PAIN [None]
  - THROMBOPHLEBITIS SUPERFICIAL [None]
  - HAEMOPTYSIS [None]
  - CHEST PAIN [None]
